FAERS Safety Report 9012762 (Version 1)
Quarter: 2013Q1

REPORT INFORMATION
  Report Type: Spontaneous
  Country: IT (occurrence: IT)
  Receive Date: 20130114
  Receipt Date: 20130114
  Transmission Date: 20140127
  Serious: Yes (Hospitalization)
  Sender: FDA-Public Use
  Company Number: IT-TEVA-379916ISR

PATIENT
  Sex: Male

DRUGS (6)
  1. CARVEDILOLO [Suspect]
  2. LANSOPRAZOLO [Suspect]
  3. LEVOFLOXACINA [Suspect]
  4. FUROSEMIDE [Suspect]
  5. RAMIPRIL [Suspect]
  6. SALBUTAMOLO [Suspect]

REACTIONS (1)
  - Tendonitis [Unknown]
